FAERS Safety Report 4494875-8 (Version None)
Quarter: 2004Q4

REPORT INFORMATION
  Report Type: 
  Country: None (occurrence: None)
  Receive Date: 20041103
  Receipt Date: 20041022
  Transmission Date: 20050328
  Serious: Yes (Hospitalization, Other)
  Sender: FDA-Public Use
  Company Number: USA-2004-0017339

PATIENT
  Age: 45 Year
  Sex: Male

DRUGS (9)
  1. OXYCODONE HCL [Suspect]
  2. MORPHINE SULFATE [Suspect]
  3. VALIUM [Suspect]
  4. MARIJUANA (CANNABIS) [Suspect]
  5. LIDOCAINE [Suspect]
  6. TYLENOL [Suspect]
  7. HYDROCODONE (HYDROCODONE) [Suspect]
  8. PERCOCET [Suspect]
  9. VICODIN [Suspect]

REACTIONS (6)
  - DRUG SCREEN POSITIVE [None]
  - DRUG TOXICITY [None]
  - HEAD INJURY [None]
  - INCOHERENT [None]
  - POLYSUBSTANCE ABUSE [None]
  - ROAD TRAFFIC ACCIDENT [None]
